FAERS Safety Report 10687530 (Version 1)
Quarter: 2015Q1

REPORT INFORMATION
  Report Type: Report from Study
  Country: RU (occurrence: RU)
  Receive Date: 20150102
  Receipt Date: 20150102
  Transmission Date: 20150720
  Serious: Yes (Hospitalization)
  Sender: FDA-Public Use
  Company Number: RU-SA-2014SA178585

PATIENT
  Age: 65 Year
  Sex: Male
  Weight: 85 kg

DRUGS (5)
  1. FURAGIN [Concomitant]
     Indication: INFLAMMATION
     Route: 048
     Dates: start: 201412
  2. LOZAP [Concomitant]
     Active Substance: LOSARTAN
     Indication: HYPERTENSION
     Dosage: 12,5 MG 2 TIMES PER DAY
     Route: 048
     Dates: start: 200007
  3. MONOCINQUE [Concomitant]
     Active Substance: ISOSORBIDE MONONITRATE
     Indication: CARDIAC FAILURE
     Route: 048
     Dates: start: 201411
  4. PLAVIX [Suspect]
     Active Substance: CLOPIDOGREL BISULFATE
     Indication: PROPHYLAXIS
     Route: 048
     Dates: start: 201411, end: 201411
  5. CONCOR [Concomitant]
     Active Substance: BISOPROLOL FUMARATE
     Indication: HYPERTENSION
     Dosage: 1/2 TABL DAILY
     Route: 048
     Dates: start: 201411

REACTIONS (3)
  - Haematuria [Unknown]
  - Haemoglobin decreased [Unknown]
  - Renal surgery [Unknown]

NARRATIVE: CASE EVENT DATE: 2014
